FAERS Safety Report 26194940 (Version 1)
Quarter: 2025Q4

REPORT INFORMATION
  Report Type: Spontaneous
  Country: EU (occurrence: EU)
  Receive Date: 20251224
  Receipt Date: 20251224
  Transmission Date: 20260117
  Serious: Yes (Other)
  Sender: MERCK SHARP & DOHME LLC
  Company Number: None

PATIENT
  Age: 47 Year
  Sex: Male
  Weight: 52 kg

DRUGS (1)
  1. KEYTRUDA [Suspect]
     Active Substance: PEMBROLIZUMAB
     Indication: Squamous cell carcinoma
     Dosage: 200 MG EVERY 3 WEEKS, CONCENTRATION 25 MG/ML
     Route: 042
     Dates: start: 20240311

REACTIONS (1)
  - Spondyloarthropathy [Not Recovered/Not Resolved]

NARRATIVE: CASE EVENT DATE: 20250515
